FAERS Safety Report 8879023 (Version 1)
Quarter: 2012Q4

REPORT INFORMATION
  Report Type: 
  Country: US (occurrence: US)
  Receive Date: 20121026
  Receipt Date: 20121026
  Transmission Date: 20130627
  Serious: No
  Sender: FDA-Public Use
  Company Number: US-ASTRAZENECA-2011SE45171

PATIENT
  Age: 68 Year
  Sex: Female
  Weight: 81.6 kg

DRUGS (8)
  1. CRESTOR [Suspect]
     Indication: BLOOD CHOLESTEROL ABNORMAL
     Route: 048
  2. CRESTOR [Suspect]
     Indication: BLOOD CHOLESTEROL ABNORMAL
     Dosage: 40
     Route: 048
  3. BETASERON [Concomitant]
     Indication: MULTIPLE SCLEROSIS
  4. BACLOFEN [Concomitant]
     Indication: MULTIPLE SCLEROSIS
  5. AVAPRO [Concomitant]
  6. TRIAMTERINE HCTZ [Concomitant]
     Indication: DIURETIC THERAPY
  7. SYMBALTA [Concomitant]
     Indication: DEPRESSION
  8. ASA [Concomitant]
     Indication: CARDIAC DISORDER

REACTIONS (2)
  - Vulvovaginal burning sensation [Unknown]
  - Blood cholesterol increased [Unknown]
